FAERS Safety Report 15104049 (Version 1)
Quarter: 2018Q3

REPORT INFORMATION
  Report Type: Spontaneous
  Country: CN (occurrence: CN)
  Receive Date: 20180703
  Receipt Date: 20180703
  Transmission Date: 20181010
  Serious: Yes (Other)
  Sender: FDA-Public Use
  Company Number: CN-PFIZER INC-2018266474

PATIENT
  Age: 62 Year
  Sex: Female
  Weight: 59 kg

DRUGS (2)
  1. CYTARABINE. [Suspect]
     Active Substance: CYTARABINE
     Indication: CHEMOTHERAPY
     Dosage: 10 MG, 1X/DAY
     Route: 041
     Dates: start: 20180416, end: 20180427
  2. DECITABINE. [Suspect]
     Active Substance: DECITABINE
     Indication: CHEMOTHERAPY
     Dosage: 10 MG, ALTERNATE DAY
     Route: 058
     Dates: start: 20180416, end: 20180425

REACTIONS (4)
  - Bone marrow failure [Recovering/Resolving]
  - Vaginal ulceration [Unknown]
  - Vaginal haemorrhage [Unknown]
  - Haemorrhage subcutaneous [Unknown]

NARRATIVE: CASE EVENT DATE: 20180428
